FAERS Safety Report 8160539-2 (Version None)
Quarter: 2012Q1

REPORT INFORMATION
  Report Type: 
  Country: None (occurrence: None)
  Receive Date: 20120223
  Receipt Date: 20120214
  Transmission Date: 20120608
  Serious: Yes (Hospitalization, Disabling)
  Sender: FDA-Public Use
  Company Number: BR-ASTRAZENECA-2011SE39516

PATIENT
  Age: 84 Year
  Sex: Female
  Weight: 70 kg

DRUGS (13)
  1. COMBIRON FOLICO [Concomitant]
     Indication: VITAMIN SUPPLEMENTATION
     Route: 048
     Dates: start: 20100101
  2. OMEPRAZOLE [Suspect]
     Indication: GASTRITIS
     Dosage: UNKNKOWN DOSE DAILY
     Route: 048
     Dates: start: 20010101
  3. LEXATON [Concomitant]
     Dosage: OD
  4. AYERS [Concomitant]
  5. ATACAND [Suspect]
     Indication: HYPERTENSION
     Dosage: UNKNOWN DOSE TWO TIMES A DAY
     Route: 048
     Dates: start: 20080101
  6. ISOSORBIDE MONONITRATE [Concomitant]
     Dosage: BID
  7. OSTEOFAR [Concomitant]
  8. LISADOR [Concomitant]
     Indication: INTERVERTEBRAL DISC PROTRUSION
     Dosage: UNKNOWN DOSE AS REQUIRED
     Route: 048
     Dates: start: 19920101
  9. LORAX [Concomitant]
     Indication: INSOMNIA
     Route: 048
     Dates: start: 20060101
  10. RECONTER [Concomitant]
     Dosage: OD
  11. EXELON [Concomitant]
     Dosage: OD
  12. ACETAMINOPHEN W/ CODEINE [Concomitant]
     Indication: INTERVERTEBRAL DISC PROTRUSION
     Dosage: PRN
     Route: 048
  13. OSCAL D [Concomitant]

REACTIONS (10)
  - DEMENTIA [None]
  - DRUG INEFFECTIVE [None]
  - BLOOD PRESSURE INADEQUATELY CONTROLLED [None]
  - HYPERTENSION [None]
  - CEREBROVASCULAR ACCIDENT [None]
  - HYPOKINESIA [None]
  - DEPRESSION [None]
  - PNEUMONIA [None]
  - BIPOLAR DISORDER [None]
  - INSOMNIA [None]
